FAERS Safety Report 7702935-0 (Version None)
Quarter: 2011Q3

REPORT INFORMATION
  Report Type: 
  Country: None (occurrence: None)
  Receive Date: 20110823
  Receipt Date: 20110811
  Transmission Date: 20111222
  Serious: Yes (Other)
  Sender: FDA-Public Use
  Company Number: PHHY2011JP68038

PATIENT
  Age: 50 Year
  Sex: Male

DRUGS (4)
  1. FENTANYL [Suspect]
     Dosage: 56.7 MG PER 3 DAYS
  2. FENTANYL [Suspect]
     Dosage: 16.8 MG PER 3 DAYS
  3. TEGRETOL [Suspect]
     Indication: PAIN
     Dosage: UNK UKN, UNK
  4. MORPHINE HCL ELIXIR [Concomitant]
     Dosage: 96-144 MG/ DAY

REACTIONS (2)
  - HEPATIC FUNCTION ABNORMAL [None]
  - SOMNOLENCE [None]
